FAERS Safety Report 7249727-7 (Version None)
Quarter: 2011Q1

REPORT INFORMATION
  Report Type: 
  Country: None (occurrence: None)
  Receive Date: 20110119
  Receipt Date: 20110119
  Transmission Date: 20110831
  Serious: Yes (Other)
  Sender: FDA-Public Use
  Company Number: None

PATIENT
  Age: 45 Year
  Sex: Female
  Weight: 54.4316 kg

DRUGS (2)
  1. AZITHROMYCIN 250 MG TEVA [Suspect]
     Indication: INFLUENZA
     Dosage: 500 MG DAY ONE PO, 250 MG DAY 2-5 PO
     Route: 048
     Dates: start: 20110110, end: 20110111
  2. AZITHROMYCIN 250 MG TEVA [Suspect]
     Indication: BACTERIAL INFECTION
     Dosage: 500 MG DAY ONE PO, 250 MG DAY 2-5 PO
     Route: 048
     Dates: start: 20110110, end: 20110111

REACTIONS (1)
  - URTICARIA [None]
